FAERS Safety Report 9204541 (Version 1)
Quarter: 2013Q2

REPORT INFORMATION
  Report Type: Spontaneous
  Country: CA (occurrence: CA)
  Receive Date: 20130402
  Receipt Date: 20130402
  Transmission Date: 20140414
  Serious: Yes (Hospitalization)
  Sender: FDA-Public Use
  Company Number: CA-009507513-1304CAN000788

PATIENT
  Age: 54 Year
  Sex: Male

DRUGS (2)
  1. SINGULAIR [Suspect]
     Indication: ASTHMA
     Dosage: 10 MG, UNK
     Route: 048
  2. VITAMIN D (UNSPECIFIED) [Concomitant]

REACTIONS (2)
  - Vertigo [Recovering/Resolving]
  - Nausea [Recovering/Resolving]
